FAERS Safety Report 4795691-X (Version None)
Quarter: 2005Q3

REPORT INFORMATION
  Report Type: 
  Country: None (occurrence: None)
  Receive Date: 20050929
  Receipt Date: 20050720
  Transmission Date: 20060218
  Serious: No
  Sender: FDA-Public Use
  Company Number: 05P-163-0306196-00

PATIENT
  Age: 56 Year
  Sex: Female
  Weight: 97.977 kg

DRUGS (15)
  1. HUMIRA [Suspect]
     Indication: RHEUMATOID ARTHRITIS
     Dosage: 40 MG, 1 IN  2 WK, SUBCUTANEOUS; SEE IMAGE
     Route: 058
     Dates: start: 20030101, end: 20050101
  2. HUMIRA [Suspect]
     Indication: RHEUMATOID ARTHRITIS
     Dosage: 40 MG, 1 IN  2 WK, SUBCUTANEOUS; SEE IMAGE
     Route: 058
     Dates: start: 20050101
  3. METHOTREXATE SODIUM [Concomitant]
  4. FOLIC ACID [Concomitant]
  5. HUMALOG [Concomitant]
  6. LANTUS [Concomitant]
  7. MELOXICAM [Concomitant]
  8. ESOMEPRAZOLE [Concomitant]
  9. KARVEA HCT [Concomitant]
  10. AFFEXOR [Concomitant]
  11. AMITRIPTYLINE HCL [Concomitant]
  12. ZOCOR [Concomitant]
  13. NITROGLYCERIN [Concomitant]
  14. ASPIRIN [Concomitant]
  15. ADVAIR DISKUS 100/50 [Concomitant]

REACTIONS (3)
  - DRUG INEFFECTIVE [None]
  - INJECTION SITE IRRITATION [None]
  - MUSCLE SPASMS [None]
